FAERS Safety Report 18730427 (Version 1)
Quarter: 2021Q1

REPORT INFORMATION
  Report Type: Spontaneous
  Country: CN (occurrence: CN)
  Receive Date: 20210112
  Receipt Date: 20210112
  Transmission Date: 20210419
  Serious: Yes (Other)
  Sender: FDA-Public Use
  Company Number: CN-PFIZER INC-2021011352

PATIENT
  Age: 59 Year
  Sex: Female
  Weight: 54 kg

DRUGS (2)
  1. LYRICA [Suspect]
     Active Substance: PREGABALIN
     Indication: THERAPEUTIC PROCEDURE
     Dosage: 150 MG, 2X/DAY
     Route: 048
     Dates: start: 20201209, end: 20201217
  2. ZHENG QING FENG TONG NING [Suspect]
     Active Substance: HERBALS
     Indication: THERAPEUTIC PROCEDURE
     Dosage: 120 MG, 2X/DAY
     Route: 048
     Dates: start: 20201209, end: 20201215

REACTIONS (4)
  - Rash erythematous [Recovering/Resolving]
  - Swelling [Recovering/Resolving]
  - Erythema [Recovering/Resolving]
  - Pruritus [Recovering/Resolving]

NARRATIVE: CASE EVENT DATE: 20201212
